FAERS Safety Report 8559127-5 (Version None)
Quarter: 2012Q3

REPORT INFORMATION
  Report Type: 
  Country: None (occurrence: None)
  Receive Date: 20120802
  Receipt Date: 20120725
  Transmission Date: 20120928
  Serious: No
  Sender: FDA-Public Use
  Company Number: US-BIOGENIDEC-2012BI027715

PATIENT
  Age: 55 Year
  Sex: Male

DRUGS (2)
  1. AVONEX [Suspect]
     Indication: MULTIPLE SCLEROSIS
     Route: 030
     Dates: start: 20000929
  2. AVONEX [Suspect]
     Route: 030
     Dates: start: 20100520

REACTIONS (3)
  - PAIN [None]
  - INJECTION SITE PAIN [None]
  - MEMORY IMPAIRMENT [None]
